FAERS Safety Report 14026940 (Version 1)
Quarter: 2017Q3

REPORT INFORMATION
  Report Type: Spontaneous
  Country: US (occurrence: US)
  Receive Date: 20170929
  Receipt Date: 20170929
  Transmission Date: 20171128
  Serious: No
  Sender: FDA-Public Use
  Company Number: US-SUNOVION-2017SUN004101

PATIENT
  Sex: Female
  Weight: 94.79 kg

DRUGS (3)
  1. SEROQUEL [Concomitant]
     Active Substance: QUETIAPINE FUMARATE
     Dosage: 20 MG, HS
     Route: 048
  2. ATIVAN [Concomitant]
     Active Substance: LORAZEPAM
     Dosage: 1.0 MG, AS NECESSARY
  3. LATUDA [Suspect]
     Active Substance: LURASIDONE HYDROCHLORIDE
     Indication: SCHIZOAFFECTIVE DISORDER
     Dosage: 80 MG, BID
     Route: 048
     Dates: start: 201709

REACTIONS (5)
  - Muscle spasms [Unknown]
  - Tremor [Unknown]
  - Muscle twitching [Unknown]
  - Dry mouth [Unknown]
  - Off label use [Unknown]
